FAERS Safety Report 16555512 (Version 5)
Quarter: 2019Q3

REPORT INFORMATION
  Report Type: Report from Study
  Country: US (occurrence: US)
  Receive Date: 20190710
  Receipt Date: 20190808
  Transmission Date: 20191004
  Serious: Yes (Other)
  Sender: FDA-Public Use
  Company Number: PHEH2019US028645

PATIENT
  Sex: Male

DRUGS (1)
  1. ENTRESTO [Suspect]
     Active Substance: SACUBITRIL\VALSARTAN
     Indication: CARDIAC FAILURE
     Dosage: 1 DF (97 MG SACUBITRIL AND 103 MG VALSARTAN), UNK
     Route: 048

REACTIONS (6)
  - Dyspnoea [Unknown]
  - Ejection fraction abnormal [Unknown]
  - Polycythaemia vera [Unknown]
  - Ejection fraction decreased [Unknown]
  - Endocarditis [Unknown]
  - Hyperhidrosis [Unknown]
